FAERS Safety Report 21700306 (Version 2)
Quarter: 2023Q1

REPORT INFORMATION
  Report Type: Report from Study
  Country: US (occurrence: US)
  Receive Date: 20221208
  Receipt Date: 20230222
  Transmission Date: 20230417
  Serious: No
  Sender: FDA-Public Use
  Company Number: US-ABBVIE-22K-163-4525442-00

PATIENT
  Sex: Male
  Weight: 61 kg

DRUGS (1)
  1. RINVOQ [Suspect]
     Active Substance: UPADACITINIB
     Indication: Product used for unknown indication
     Dosage: EVENT ONSET DATE: 2022
     Route: 048
     Dates: start: 202205, end: 202211

REACTIONS (4)
  - Pruritus [Unknown]
  - Nodule [Unknown]
  - Scar [Unknown]
  - Condition aggravated [Unknown]
